FAERS Safety Report 20036387 (Version 2)
Quarter: 2021Q4

REPORT INFORMATION
  Report Type: Spontaneous
  Country: US (occurrence: US)
  Receive Date: 20211105
  Receipt Date: 20211130
  Transmission Date: 20220303
  Serious: No
  Sender: FDA-Public Use
  Company Number: US-CELGENE-USA-20211008328

PATIENT
  Sex: Female
  Weight: 97.610 kg

DRUGS (1)
  1. REVLIMID [Suspect]
     Active Substance: LENALIDOMIDE
     Indication: Plasma cell myeloma
     Dosage: 25 MILLIGRAM
     Route: 048
     Dates: start: 20210603

REACTIONS (8)
  - Haemorrhoids [Unknown]
  - Hordeolum [Unknown]
  - Vision blurred [Unknown]
  - Diarrhoea [Unknown]
  - Constipation [Unknown]
  - Abdominal pain lower [Unknown]
  - Tremor [Unknown]
  - Insomnia [Unknown]
